FAERS Safety Report 4937753-X (Version None)
Quarter: 2006Q1

REPORT INFORMATION
  Report Type: 
  Country: None (occurrence: None)
  Receive Date: 20060309
  Receipt Date: 20060127
  Transmission Date: 20060701
  Serious: Yes (Hospitalization)
  Sender: FDA-Public Use
  Company Number: JP-ROCHE-434741

PATIENT
  Age: 36 Year
  Sex: Male
  Weight: 86 kg

DRUGS (4)
  1. TAMIFLU [Suspect]
     Indication: INFLUENZA
     Route: 048
     Dates: start: 20060119, end: 20060119
  2. AVELOX [Suspect]
     Indication: PYREXIA
     Route: 048
     Dates: start: 20060119, end: 20060119
  3. LYSOZYME HYDROCHLORIDE [Suspect]
     Indication: PYREXIA
     Route: 048
     Dates: start: 20060119, end: 20060119
  4. CLEMASTINE FUMARATE [Concomitant]
     Dosage: DIVIDED INTO 3 DOSES.
     Route: 048
     Dates: start: 20060119, end: 20060119

REACTIONS (2)
  - ANAPHYLACTIC SHOCK [None]
  - ATRIAL FIBRILLATION [None]
